FAERS Safety Report 4373164-6 (Version None)
Quarter: 2004Q2

REPORT INFORMATION
  Report Type: 
  Country: None (occurrence: None)
  Receive Date: 20040603
  Receipt Date: 20040518
  Transmission Date: 20050107
  Serious: Yes (Hospitalization, Other)
  Sender: FDA-Public Use
  Company Number: USA040567240

PATIENT
  Age: 49 Year
  Sex: Male

DRUGS (6)
  1. PROZAC [Suspect]
     Dosage: 20 MG IN THE MORNING
     Dates: start: 20040101
  2. ZYPREXA [Suspect]
     Indication: SCHIZOPHRENIA, PARANOID TYPE
     Dosage: 20 MG IN THE MORNING
     Dates: start: 20040301, end: 20040513
  3. NORVASC [Concomitant]
  4. HYDROCHLOROTHIAZIDE/TRIAMTERENE [Concomitant]
  5. CLONIDINE HCL [Concomitant]
  6. RISPERDAL [Concomitant]

REACTIONS (12)
  - BALANCE DISORDER [None]
  - BLOOD CHOLESTEROL INCREASED [None]
  - BLOOD GLUCOSE INCREASED [None]
  - CONFUSIONAL STATE [None]
  - DIZZINESS [None]
  - GRIP STRENGTH DECREASED [None]
  - HIGH DENSITY LIPOPROTEIN DECREASED [None]
  - HYPEROSMOLAR STATE [None]
  - LOW DENSITY LIPOPROTEIN INCREASED [None]
  - MUSCLE TWITCHING [None]
  - OXYGEN SATURATION DECREASED [None]
  - STUPOR [None]
